FAERS Safety Report 4627092-9 (Version None)
Quarter: 2005Q1

REPORT INFORMATION
  Report Type: 
  Country: None (occurrence: None)
  Receive Date: 20050331
  Receipt Date: 20050316
  Transmission Date: 20050727
  Serious: Yes (Hospitalization)
  Sender: FDA-Public Use
  Company Number: 2005-DE-01061GD

PATIENT
  Age: 43 Year
  Sex: Male

DRUGS (16)
  1. CALCIUM CARBONATE (CALCIUM CARBONATE) [Suspect]
     Dosage: PO
     Route: 048
  2. CLONIDINE [Suspect]
     Indication: PAIN
     Dosage: TD
     Route: 062
  3. KETOROLAC (KETOROLAC) [Suspect]
     Indication: PAIN
     Dosage: IV
     Route: 042
  4. CLONIDINE HCL [Concomitant]
  5. ASPIRIN [Suspect]
  6. LANSOPRAZOLE [Concomitant]
  7. AMLODIPINE [Concomitant]
  8. ATORVASTATIN (ATORVASTATIN) [Concomitant]
  9. GABAPENTIN [Concomitant]
  10. CLOPIDOGREL BISULFATE [Concomitant]
  11. INSULIN [Concomitant]
  12. FUROSEMIDE [Concomitant]
  13. FENTANYL [Concomitant]
  14. HYDROCODONE BITARTRATE [Concomitant]
  15. LACTULOSE [Concomitant]
  16. PROCHLORPERAZINE MALEATE [Concomitant]

REACTIONS (13)
  - CALCINOSIS [None]
  - CALCIPHYLAXIS [None]
  - CANDIDIASIS [None]
  - CYANOSIS [None]
  - DIABETIC MICROANGIOPATHY [None]
  - DRUG INEFFECTIVE [None]
  - GANGRENE [None]
  - INFARCTION [None]
  - PENILE PAIN [None]
  - PERIPHERAL VASCULAR DISORDER [None]
  - PEYRONIE'S DISEASE [None]
  - URINARY RETENTION [None]
  - URINARY TRACT INFECTION FUNGAL [None]
